FAERS Safety Report 5686808-3 (Version None)
Quarter: 2008Q1

REPORT INFORMATION
  Report Type: 
  Country: None (occurrence: None)
  Receive Date: 20080328
  Receipt Date: 20070529
  Transmission Date: 20080703
  Serious: No
  Sender: FDA-Public Use
  Company Number: US-BAYER-US-2007-019513

PATIENT
  Age: 33 Year
  Sex: Female
  Weight: 166 kg

DRUGS (6)
  1. MIRENA [Suspect]
     Indication: CONTRACEPTION
     Route: 015
     Dates: start: 20070507, end: 20070524
  2. ZOCOR [Concomitant]
  3. LISINOPRIL [Concomitant]
  4. ACTOS [Concomitant]
  5. GLIPIZIDE [Concomitant]
  6. BUSPAR [Concomitant]

REACTIONS (2)
  - BLISTER [None]
  - SWELLING [None]
